FAERS Safety Report 7141180-7 (Version None)
Quarter: 2010Q4

REPORT INFORMATION
  Report Type: 
  Country: None (occurrence: None)
  Receive Date: 20101202
  Receipt Date: 20101202
  Transmission Date: 20110411
  Serious: Yes (Hospitalization)
  Sender: FDA-Public Use
  Company Number: None

PATIENT
  Age: 53 Year
  Sex: Female
  Weight: 69.8539 kg

DRUGS (3)
  1. AMOXICILLIN AND CLAVULANATE POTASSIUM [Suspect]
     Indication: COUGH
     Dosage: 1 TABLET TWICE A DAY
     Dates: start: 20091208, end: 20091213
  2. AMOXICILLIN AND CLAVULANATE POTASSIUM [Suspect]
     Indication: PAIN
     Dosage: 1 TABLET TWICE A DAY
     Dates: start: 20091208, end: 20091213
  3. AMOXICILLIN AND CLAVULANATE POTASSIUM [Suspect]
     Indication: PYREXIA
     Dosage: 1 TABLET TWICE A DAY
     Dates: start: 20091208, end: 20091213

REACTIONS (8)
  - BONE PAIN [None]
  - COUGH [None]
  - DIARRHOEA [None]
  - HAEMATOCHEZIA [None]
  - HAEMORRHOIDS [None]
  - INFLUENZA LIKE ILLNESS [None]
  - PAIN [None]
  - PYREXIA [None]
